FAERS Safety Report 4686193-X (Version None)
Quarter: 2005Q2

REPORT INFORMATION
  Report Type: 
  Country: None (occurrence: None)
  Receive Date: 20050609
  Receipt Date: 20050601
  Transmission Date: 20051028
  Serious: Yes (Other)
  Sender: FDA-Public Use
  Company Number: DE-BOEHRINGER INGELHEIM PHARMACEUTICALS, INC.-2005-DE-02063DE

PATIENT
  Age: 65 Year
  Sex: Female

DRUGS (8)
  1. SPIRIVA [Suspect]
     Indication: CHRONIC OBSTRUCTIVE PULMONARY DISEASE
     Route: 055
  2. ATMADISC [Suspect]
     Dosage: STRENGTH: 50 MCG SALMETEROLXINAFOAT/100 MCG FLUTICASON-17-PROPIONAT
  3. BRONCHOSPRAY [Suspect]
     Dosage: 2 PUFFS AS REQUIRED TO 8 PUFFS/DAY MAXIMAL
     Route: 055
  4. DICLO RATIOPHARM [Suspect]
     Dosage: AS REQUIRED
     Route: 048
  5. EVISTA [Suspect]
  6. SINGULAIR [Suspect]
  7. CLARYTHROMYCIN [Suspect]
  8. STEROID [Concomitant]
     Indication: ASTHMA

REACTIONS (2)
  - HAEMORRHAGE [None]
  - THROMBOCYTOPENIA [None]
